FAERS Safety Report 18716541 (Version 1)
Quarter: 2021Q1

REPORT INFORMATION
  Report Type: Spontaneous
  Country: US (occurrence: US)
  Receive Date: 20210108
  Receipt Date: 20210108
  Transmission Date: 20210419
  Serious: Yes (Other)
  Sender: FDA-Public Use
  Company Number: None

PATIENT
  Age: 50 Year
  Sex: Male
  Weight: 117 kg

DRUGS (5)
  1. BENADRYL 25 MG IV [Concomitant]
     Dates: start: 20210107, end: 20210107
  2. IBUPROFEN 600 MG PO [Concomitant]
     Dates: start: 20210107, end: 20210107
  3. SODIUM CHLORIDE 0.9% QS BASE [Concomitant]
     Dates: start: 20210107, end: 20210107
  4. BAMLANIVIMAB. [Suspect]
     Active Substance: BAMLANIVIMAB
     Indication: COVID-19
     Dosage: ?          OTHER FREQUENCY:ONCE;?
     Route: 042
  5. REGLAN 10 MG IV [Concomitant]
     Dates: start: 20210107, end: 20210107

REACTIONS (4)
  - Hypoxia [None]
  - Pruritus [None]
  - Respiratory distress [None]
  - Rash erythematous [None]

NARRATIVE: CASE EVENT DATE: 20210107
